FAERS Safety Report 9460782 (Version 3)
Quarter: 2013Q4

REPORT INFORMATION
  Report Type: Report from Study
  Country: JP (occurrence: JP)
  Receive Date: 20130815
  Receipt Date: 20131223
  Transmission Date: 20140711
  Serious: Yes (Hospitalization)
  Sender: FDA-Public Use
  Company Number: JP-GLAXOSMITHKLINE-B0914702A

PATIENT
  Age: 8 Decade
  Sex: Male

DRUGS (5)
  1. ADOAIR [Suspect]
     Indication: CHRONIC OBSTRUCTIVE PULMONARY DISEASE
     Route: 055
     Dates: start: 20130725, end: 20131011
  2. CRAVIT [Concomitant]
     Indication: PNEUMONIA
     Dosage: 500MG PER DAY
     Route: 042
     Dates: start: 20130809, end: 20130826
  3. SULBACILLIN [Concomitant]
     Indication: PNEUMONIA
     Dosage: 1.5G THREE TIMES PER DAY
     Route: 042
     Dates: start: 20130809, end: 20130826
  4. MUCODYNE [Concomitant]
     Indication: PNEUMONIA
     Dosage: 500MG THREE TIMES PER DAY
     Route: 048
     Dates: start: 20130810, end: 20130830
  5. HEPARIN-LOCK [Concomitant]
     Dosage: 10ML THREE TIMES PER DAY
     Route: 042
     Dates: start: 20130809, end: 20130826

REACTIONS (1)
  - Pneumonia [Recovered/Resolved]
